FAERS Safety Report 9537011 (Version 1)
Quarter: 2013Q3

REPORT INFORMATION
  Report Type: Spontaneous
  Country: US (occurrence: US)
  Receive Date: 20130919
  Receipt Date: 20130919
  Transmission Date: 20140515
  Serious: No
  Sender: FDA-Public Use
  Company Number: US-009507513-1309USA003316

PATIENT
  Sex: Female

DRUGS (3)
  1. VICTRELIS [Suspect]
     Indication: CHRONIC HEPATITIS C
     Dosage: UNK
     Dates: start: 20130725
  2. PEGASYS [Suspect]
     Indication: CHRONIC HEPATITIS C
     Dosage: PRE-FILLED SYRINGE
     Dates: start: 20130725
  3. RIBAVIRIN [Suspect]
     Indication: CHRONIC HEPATITIS C
     Dosage: UNK
     Dates: start: 20130725

REACTIONS (8)
  - Pain [Unknown]
  - Pain [Unknown]
  - Epistaxis [Unknown]
  - Pyrexia [Unknown]
  - Weight decreased [Unknown]
  - Dizziness [Unknown]
  - Dysgeusia [Unknown]
  - Decreased appetite [Unknown]
